FAERS Safety Report 8380483-5 (Version None)
Quarter: 2012Q2

REPORT INFORMATION
  Report Type: 
  Country: None (occurrence: None)
  Receive Date: 20120515
  Receipt Date: 20120503
  Transmission Date: 20120825
  Serious: Yes (Hospitalization, Other)
  Sender: FDA-Public Use
  Company Number: 2012PROUSA01271

PATIENT
  Age: 76 Year
  Sex: Male
  Weight: 104.3 kg

DRUGS (11)
  1. POTASSIUM CHLORIDE [Concomitant]
  2. GLYBURIDE [Concomitant]
  3. FUROSEMIDE [Concomitant]
  4. PROVENGE [Suspect]
     Indication: PROSTATE CANCER METASTATIC
     Dosage: 250 ML, SINGLE INTRAVENOUS
     Route: 042
     Dates: start: 20120329, end: 20120329
  5. WARFARIN SODIUM [Concomitant]
  6. CARVEDILOL [Concomitant]
  7. VICODIN [Concomitant]
  8. PRAVASTATIN [Concomitant]
  9. OMEPRAZOLE [Concomitant]
  10. BACLOFEN [Concomitant]
  11. HYDRALAZINE HCL [Concomitant]

REACTIONS (7)
  - DISEASE PROGRESSION [None]
  - ANAEMIA [None]
  - HYPERGLYCAEMIA [None]
  - SPINAL CORD COMPRESSION [None]
  - FALL [None]
  - DYSPNOEA [None]
  - OEDEMA [None]
